FAERS Safety Report 16480005 (Version 1)
Quarter: 2019Q2

REPORT INFORMATION
  Report Type: Spontaneous
  Country: HU (occurrence: HU)
  Receive Date: 20190626
  Receipt Date: 20190626
  Transmission Date: 20190711
  Serious: Yes (Life-Threatening, Hospitalization, Other)
  Sender: FDA-Public Use
  Company Number: PHHY2019HU145705

PATIENT
  Age: 60 Year
  Sex: Male

DRUGS (1)
  1. PARACETAMOL [Suspect]
     Active Substance: ACETAMINOPHEN
     Indication: PRODUCT USED FOR UNKNOWN INDICATION
     Dosage: MORE THAN 4 G / DAY
     Route: 048

REACTIONS (3)
  - Renal failure [Unknown]
  - Acute hepatic failure [Unknown]
  - Accidental overdose [Unknown]
